FAERS Safety Report 11660427 (Version 1)
Quarter: 2015Q4

REPORT INFORMATION
  Report Type: Spontaneous
  Country: US (occurrence: US)
  Receive Date: 20151026
  Receipt Date: 20151026
  Transmission Date: 20160304
  Serious: Yes (Hospitalization)
  Sender: FDA-Public Use
  Company Number: US-ACTELION-A-US2015-121847

PATIENT
  Age: 78 Year
  Sex: Female

DRUGS (10)
  1. SIMVASTATIN. [Concomitant]
     Active Substance: SIMVASTATIN
  2. PROPAFENONE. [Concomitant]
     Active Substance: PROPAFENONE
  3. ADCIRCA [Concomitant]
     Active Substance: TADALAFIL
  4. COMBIVENT RESPIMAT [Concomitant]
     Active Substance: ALBUTEROL SULFATE\IPRATROPIUM BROMIDE
  5. DIGOXIN. [Concomitant]
     Active Substance: DIGOXIN
  6. LASIX [Concomitant]
     Active Substance: FUROSEMIDE
  7. OPSUMIT [Suspect]
     Active Substance: MACITENTAN
     Indication: PULMONARY ARTERIAL HYPERTENSION
     Dosage: 10 MG, QD
     Route: 048
     Dates: start: 20150422
  8. TYVASO [Concomitant]
     Active Substance: TREPROSTINIL
  9. WARFARIN [Concomitant]
     Active Substance: WARFARIN
  10. METAMUCIL [Concomitant]
     Active Substance: PLANTAGO SEED

REACTIONS (5)
  - Nasopharyngitis [Unknown]
  - Malaise [Unknown]
  - Dyspnoea [Unknown]
  - Sputum discoloured [Unknown]
  - Cystitis [Not Recovered/Not Resolved]

NARRATIVE: CASE EVENT DATE: 20150724
